FAERS Safety Report 7605675-1 (Version None)
Quarter: 2011Q3

REPORT INFORMATION
  Report Type: 
  Country: None (occurrence: None)
  Receive Date: 20110712
  Receipt Date: 20110712
  Transmission Date: 20111222
  Serious: Yes (Hospitalization)
  Sender: FDA-Public Use
  Company Number: None

PATIENT
  Age: 65 Year
  Sex: Male
  Weight: 109 kg

DRUGS (2)
  1. VALSARTAN [Suspect]
     Indication: HYPERTENSION
     Dosage: 320 MG EVERY DAY PO
     Route: 048
     Dates: start: 20110316, end: 20110507
  2. FUROSEMIDE [Suspect]
     Indication: CARDIAC FAILURE CONGESTIVE
     Dosage: 20 MG EVERY DAY PO
     Route: 048
     Dates: start: 20101210

REACTIONS (2)
  - HYPOTENSION [None]
  - SYNCOPE [None]
